FAERS Safety Report 9712016 (Version 1)
Quarter: 2013Q4

REPORT INFORMATION
  Report Type: Spontaneous
  Country: US (occurrence: US)
  Receive Date: 20131126
  Receipt Date: 20131126
  Transmission Date: 20140711
  Serious: No
  Sender: FDA-Public Use
  Company Number: US-BRISTOL-MYERS SQUIBB COMPANY-19129345

PATIENT
  Age: 80 Year
  Sex: Male
  Weight: 106.12 kg

DRUGS (2)
  1. BYDUREON [Suspect]
     Indication: TYPE 2 DIABETES MELLITUS
     Dates: start: 20130716
  2. GLYBURIDE [Suspect]
     Route: 048

REACTIONS (2)
  - Blood glucose decreased [Unknown]
  - Malaise [Unknown]
